FAERS Safety Report 12518488 (Version 1)
Quarter: 2016Q2

REPORT INFORMATION
  Report Type: Spontaneous
  Country: US (occurrence: US)
  Receive Date: 20160630
  Receipt Date: 20160630
  Transmission Date: 20160815
  Serious: Yes (Other)
  Sender: FDA-Public Use
  Company Number: US-ALLERGAN-1661505US

PATIENT
  Age: 62 Year
  Sex: Male
  Weight: 73.3 kg

DRUGS (3)
  1. OMEPRAZOLE. [Concomitant]
     Active Substance: OMEPRAZOLE
     Indication: PRODUCT USED FOR UNKNOWN INDICATION
     Dosage: UNK
  2. FIORINAL WITH CODEINE [Suspect]
     Active Substance: ASPIRIN\BUTALBITAL\CAFFEINE\CODEINE PHOSPHATE
     Indication: NERVE INJURY
     Dosage: TWO IN THE MORNING AND TWO IN THE EVENING
  3. NEURONTIN [Concomitant]
     Active Substance: GABAPENTIN
     Indication: NEURALGIA
     Dosage: 1200 MG, QD

REACTIONS (4)
  - Gastrointestinal surgery [Unknown]
  - Polyneuropathy [Unknown]
  - Inappropriate schedule of drug administration [Unknown]
  - Erectile dysfunction [Unknown]
